FAERS Safety Report 6767445-6 (Version None)
Quarter: 2010Q2

REPORT INFORMATION
  Report Type: 
  Country: None (occurrence: None)
  Receive Date: 20100614
  Receipt Date: 20100531
  Transmission Date: 20101027
  Serious: Yes (Other)
  Sender: FDA-Public Use
  Company Number: PHHY2010FR30594

PATIENT
  Sex: Female
  Weight: 80 kg

DRUGS (9)
  1. ACLASTA [Suspect]
     Indication: OSTEOPOROSIS
     Dosage: 5 MG
     Route: 042
     Dates: start: 20100504
  2. MODUCREN [Concomitant]
     Dosage: UNK
  3. VASTAREL [Concomitant]
     Dosage: UNK
  4. MEDIATENSYL [Concomitant]
     Dosage: UNK
  5. AMLODIPINE [Concomitant]
     Dosage: UNK
  6. FENOFIBRATE [Concomitant]
     Dosage: UNK
  7. OMEPRAZOLE [Concomitant]
     Dosage: UNK
  8. CALTRATE [Concomitant]
     Dosage: UNK
  9. PREVISCAN [Concomitant]
     Dosage: UNK

REACTIONS (1)
  - ERYSIPELAS [None]
